FAERS Safety Report 4446443-1 (Version None)
Quarter: 2004Q3

REPORT INFORMATION
  Report Type: 
  Country: None (occurrence: None)
  Receive Date: 20040907
  Receipt Date: 20040825
  Transmission Date: 20050211
  Serious: Yes (Death, Disabling, Other)
  Sender: FDA-Public Use
  Company Number: 2004054371

PATIENT
  Sex: Female

DRUGS (1)
  1. NEURONTIN [Suspect]
     Indication: ILL-DEFINED DISORDER

REACTIONS (4)
  - ARTHRITIS [None]
  - ASTHMA [None]
  - NEUROPATHY PERIPHERAL [None]
  - THYROID DISORDER [None]
